FAERS Safety Report 13945319 (Version 2)
Quarter: 2017Q3

REPORT INFORMATION
  Report Type: Spontaneous
  Country: US (occurrence: US)
  Receive Date: 20170907
  Receipt Date: 20170914
  Transmission Date: 20171128
  Serious: No
  Sender: FDA-Public Use
  Company Number: US-009507513-1709USA003136

PATIENT
  Age: 89 Year
  Sex: Female

DRUGS (1)
  1. BELSOMRA [Suspect]
     Active Substance: SUVOREXANT
     Indication: INSOMNIA
     Dosage: ONE 5 MG TABLET DAILY
     Route: 048
     Dates: start: 20170902

REACTIONS (3)
  - Confusional state [Recovering/Resolving]
  - Drug ineffective [Unknown]
  - Disorientation [Recovering/Resolving]

NARRATIVE: CASE EVENT DATE: 20170902
